FAERS Safety Report 13294018 (Version 1)
Quarter: 2017Q1

REPORT INFORMATION
  Report Type: Report from Study
  Country: RU (occurrence: RU)
  Receive Date: 20170303
  Receipt Date: 20170303
  Transmission Date: 20170428
  Serious: Yes (Death, Other)
  Sender: FDA-Public Use
  Company Number: RU-ASTRAZENECA-2016SF27723

PATIENT
  Age: 53 Year
  Sex: Male
  Weight: 78 kg

DRUGS (5)
  1. BRILINTA [Suspect]
     Active Substance: TICAGRELOR
     Indication: MYOCARDIAL ISCHAEMIA
     Route: 048
     Dates: start: 20160721, end: 20160821
  2. LORISTA [Concomitant]
     Active Substance: LOSARTAN POTASSIUM
     Indication: HYPERTENSION
     Route: 048
     Dates: start: 20160725, end: 20160821
  3. NEBILET [Concomitant]
     Active Substance: NEBIVOLOL
     Indication: CORONARY ARTERY DISEASE
     Route: 048
     Dates: start: 20160721, end: 20160821
  4. BRILINTA [Suspect]
     Active Substance: TICAGRELOR
     Indication: ANGINA UNSTABLE
     Route: 048
     Dates: start: 20160721, end: 20160821
  5. CARDIOMAGNYL [Concomitant]
     Active Substance: ASPIRIN\MAGNESIUM HYDROXIDE
     Indication: CORONARY ARTERY DISEASE
     Route: 048
     Dates: start: 20160721, end: 20160821

REACTIONS (3)
  - Peripheral ischaemia [Unknown]
  - Multiple organ dysfunction syndrome [Fatal]
  - Myocardial infarction [Fatal]

NARRATIVE: CASE EVENT DATE: 20160830
